FAERS Safety Report 5900866-X (Version None)
Quarter: 2008Q3

REPORT INFORMATION
  Report Type: 
  Country: None (occurrence: None)
  Receive Date: 20080929
  Receipt Date: 20071010
  Transmission Date: 20090109
  Serious: Yes (Hospitalization)
  Sender: FDA-Public Use
  Company Number: A0658961A

PATIENT
  Age: 23 Month
  Sex: Male

DRUGS (3)
  1. LAMICTAL [Suspect]
     Indication: DRUG USE FOR UNKNOWN INDICATION
     Dosage: 150MG THREE TIMES PER DAY
  2. DOXEPIN HCL [Suspect]
     Indication: SLEEP DISORDER
     Route: 065
  3. LAMOTRIGINE [Suspect]
     Indication: DRUG USE FOR UNKNOWN INDICATION
     Dosage: 150MG THREE TIMES PER DAY
     Dates: start: 20060830

REACTIONS (1)
  - CONVULSION [None]
